FAERS Safety Report 9384497 (Version 1)
Quarter: 2013Q3

REPORT INFORMATION
  Report Type: Report from Study
  Country: CA (occurrence: CA)
  Receive Date: 20130705
  Receipt Date: 20130705
  Transmission Date: 20140515
  Serious: Yes (Other)
  Sender: FDA-Public Use
  Company Number: CA-JNJFOC-20130620824

PATIENT
  Sex: Female
  Weight: 80 kg

DRUGS (4)
  1. REMICADE [Suspect]
     Indication: CROHN^S DISEASE
     Route: 042
     Dates: start: 2009
  2. PLAQUENIL [Concomitant]
     Dosage: UNSURE OF DOSE
     Route: 065
  3. SYNTHROID [Concomitant]
     Route: 065
  4. CODEINE CONTIN [Concomitant]
     Route: 048

REACTIONS (1)
  - Systemic lupus erythematosus [Not Recovered/Not Resolved]
